FAERS Safety Report 9205094 (Version 1)
Quarter: 2013Q2

REPORT INFORMATION
  Report Type: Spontaneous
  Country: US (occurrence: None)
  Receive Date: 20130401
  Receipt Date: 20130401
  Transmission Date: 20140414
  Serious: Yes (Other)
  Sender: FDA-Public Use
  Company Number: None

PATIENT
  Age: 32 Year
  Sex: Female
  Weight: 102.51 kg

DRUGS (1)
  1. ARANESP INJECTION [Suspect]
     Indication: ANAEMIA
     Dates: start: 20090501, end: 20130331

REACTIONS (3)
  - Hypoaesthesia [None]
  - Hypoaesthesia [None]
  - Headache [None]
